FAERS Safety Report 6183599-7 (Version None)
Quarter: 2009Q2

REPORT INFORMATION
  Report Type: 
  Country: None (occurrence: None)
  Receive Date: 20090508
  Receipt Date: 20090507
  Transmission Date: 20091009
  Serious: Yes (Other)
  Sender: FDA-Public Use
  Company Number: US-PFIZER INC-2008041051

PATIENT
  Sex: Female

DRUGS (4)
  1. CELEBREX [Suspect]
     Indication: OSTEOARTHRITIS
  2. LYRICA [Suspect]
     Indication: OSTEOARTHRITIS
     Dates: start: 20080101, end: 20080511
  3. ZYRTEC [Concomitant]
  4. SPIRIVA [Concomitant]
     Route: 055

REACTIONS (4)
  - SHOULDER OPERATION [None]
  - SKIN EXFOLIATION [None]
  - SWELLING [None]
  - WEIGHT INCREASED [None]
